FAERS Safety Report 21078006 (Version 1)
Quarter: 2022Q3

REPORT INFORMATION
  Report Type: Report from Study
  Country: US (occurrence: US)
  Receive Date: 20220713
  Receipt Date: 20220713
  Transmission Date: 20221026
  Serious: No
  Sender: FDA-Public Use
  Company Number: US-VANDA PHARMACEUTICALS, INC-2021TASUS005364

PATIENT
  Sex: Male
  Weight: 174.97 kg

DRUGS (1)
  1. HETLIOZ [Suspect]
     Active Substance: TASIMELTEON
     Indication: Non-24-hour sleep-wake disorder
     Dosage: 20 MILLIGRAM, EVERY 24 HOURS, QHS ONE HOUR BEFORE BEDTIME
     Route: 048

REACTIONS (2)
  - Illness [Unknown]
  - Decreased appetite [Unknown]
